FAERS Safety Report 24425277 (Version 2)
Quarter: 2025Q3

REPORT INFORMATION
  Report Type: Report from Study
  Country: EU (occurrence: EU)
  Receive Date: 20241011
  Receipt Date: 20250803
  Transmission Date: 20251021
  Serious: Yes (Disabling, Other)
  Sender: ALEXION PHARMACEUTICALS
  Company Number: EU-AstraZeneca-2023A114864

PATIENT
  Sex: Male
  Weight: 85 kg

DRUGS (2)
  1. DURVALUMAB [Suspect]
     Active Substance: DURVALUMAB
     Indication: Hepatocellular carcinoma
  2. TREMELIMUMAB [Suspect]
     Active Substance: TREMELIMUMAB
     Indication: Hepatocellular carcinoma

REACTIONS (3)
  - Arthralgia [Unknown]
  - Myositis [Unknown]
  - Polyarthritis [Unknown]
